FAERS Safety Report 12729108 (Version 1)
Quarter: 2016Q3

REPORT INFORMATION
  Report Type: Spontaneous
  Country: GB (occurrence: GB)
  Receive Date: 20160909
  Receipt Date: 20160909
  Transmission Date: 20161109
  Serious: Yes (Hospitalization)
  Sender: FDA-Public Use
  Company Number: GB-TEVA-689314ACC

PATIENT
  Age: 14 Year
  Sex: Female

DRUGS (14)
  1. OMEPRAZOLE. [Suspect]
     Active Substance: OMEPRAZOLE
     Dosage: 5 ML DAILY; 20MG/5ML.
     Route: 048
  2. AZITHROMYCIN ANHYDROUS. [Concomitant]
     Active Substance: AZITHROMYCIN ANHYDROUS
     Dosage: MONDAY, WEDNESDAY AND FRIDAY. 200MG/5ML.
     Route: 048
  3. PREDNISOLONE. [Concomitant]
     Active Substance: PREDNISOLONE
     Dosage: 8 DOSAGE FORMS DAILY;
     Route: 048
  4. CLOBAZAM [Concomitant]
     Active Substance: CLOBAZAM
     Dosage: 10 ML DAILY; 5MG/5ML.
     Route: 048
  5. LACOSAMIDE. [Concomitant]
     Active Substance: LACOSAMIDE
     Dosage: 40 ML DAILY; 10MG/ML.
     Route: 048
  6. MELATONIN [Concomitant]
     Active Substance: MELATONIN
     Dosage: 5 MILLIGRAM DAILY; AT NIGHT.
     Route: 048
  7. LEVETIRACETAM. [Suspect]
     Active Substance: LEVETIRACETAM
     Dosage: 30 ML DAILY; 100MG/ML
     Route: 048
  8. SODIUM PICOSULFATE [Concomitant]
     Active Substance: SODIUM PICOSULFATE
     Dosage: 10 ML DAILY; 5MG/5ML.
     Route: 048
  9. PHENOBARBITAL. [Concomitant]
     Active Substance: PHENOBARBITAL
     Dosage: 15 ML DAILY; 50MG/5ML.
     Route: 048
  10. PHENYTOIN. [Suspect]
     Active Substance: PHENYTOIN
     Dosage: 11 ML DAILY; 90MG/5ML.
     Route: 048
  11. DORNASE ALFA [Concomitant]
     Active Substance: DORNASE ALFA
     Dosage: 2 DOSAGE FORMS DAILY; AMPOULE. 2.5MG/2.5ML.
     Route: 050
  12. LORAZEPAM. [Concomitant]
     Active Substance: LORAZEPAM
     Dosage: 30 ML DAILY; 1MG/5ML.
     Route: 048
  13. PARACETAMOL [Concomitant]
     Active Substance: ACETAMINOPHEN
     Dosage: 30 ML DAILY; 250MG/5ML.
     Route: 048
  14. COLISTIMETHATE [Concomitant]
     Active Substance: COLISTIMETHATE SODIUM
     Dosage: 2 DOSAGE FORMS DAILY; AMPOULE. 1MILLION UNIT
     Route: 050

REACTIONS (1)
  - Neutropenia [Unknown]
